FAERS Safety Report 5588970-X (Version None)
Quarter: 2008Q1

REPORT INFORMATION
  Report Type: 
  Country: None (occurrence: None)
  Receive Date: 20080111
  Receipt Date: 20080104
  Transmission Date: 20080703
  Serious: Yes (Hospitalization)
  Sender: FDA-Public Use
  Company Number: US-MERCK-0801USA00545

PATIENT
  Age: 62 Year
  Sex: Female

DRUGS (6)
  1. JANUMET [Suspect]
     Indication: DIABETES MELLITUS
     Route: 048
     Dates: start: 20070101, end: 20071201
  2. RISPERDAL [Concomitant]
     Route: 065
  3. DEPAKOTE [Interacting]
     Route: 065
  4. INSULIN [Concomitant]
     Route: 065
  5. LASIX [Concomitant]
     Route: 065
  6. ALTACE [Concomitant]
     Route: 065

REACTIONS (3)
  - DIARRHOEA [None]
  - DRUG INTERACTION [None]
  - MENTAL DISORDER [None]
